FAERS Safety Report 25619281 (Version 1)
Quarter: 2025Q3

REPORT INFORMATION
  Report Type: Spontaneous
  Country: US (occurrence: None)
  Receive Date: 20250729
  Receipt Date: 20250729
  Transmission Date: 20251021
  Serious: No
  Sender: Harrow Health
  Company Number: US-HARROW-HAR-2025-US-00479

PATIENT
  Sex: Male

DRUGS (1)
  1. IHEEZO [Suspect]
     Active Substance: CHLOROPROCAINE HYDROCHLORIDE
     Route: 047
     Dates: start: 20250716

REACTIONS (2)
  - Eye pain [Unknown]
  - Product temperature excursion issue [Unknown]

NARRATIVE: CASE EVENT DATE: 20250716
